FAERS Safety Report 6041885-5 (Version None)
Quarter: 2009Q1

REPORT INFORMATION
  Report Type: 
  Country: None (occurrence: None)
  Receive Date: 20090116
  Receipt Date: 20090113
  Transmission Date: 20090719
  Serious: Yes (Death, Other)
  Sender: FDA-Public Use
  Company Number: US-BRISTOL-MYERS SQUIBB COMPANY-14470413

PATIENT
  Age: 34 Year
  Sex: Female

DRUGS (5)
  1. TRAZODONE HCL [Suspect]
     Route: 048
  2. AMLODIPINE BESYLATE [Suspect]
     Route: 048
  3. AMITRIPTYLINE HCL [Suspect]
     Route: 048
  4. FLUOXETINE [Suspect]
     Route: 048
  5. PREGABALIN [Suspect]
     Route: 048

REACTIONS (9)
  - ABDOMINAL PAIN [None]
  - BLOOD UREA INCREASED [None]
  - CARDIAC ARREST [None]
  - COMPLETED SUICIDE [None]
  - DRUG LEVEL INCREASED [None]
  - ELECTROMECHANICAL DISSOCIATION [None]
  - METABOLIC ACIDOSIS [None]
  - NAUSEA [None]
  - VOMITING [None]
